FAERS Safety Report 5095498-2 (Version None)
Quarter: 2006Q3

REPORT INFORMATION
  Report Type: 
  Country: None (occurrence: None)
  Receive Date: 20060901
  Receipt Date: 20060901
  Transmission Date: 20061208
  Serious: Yes (Life-Threatening, Hospitalization)
  Sender: FDA-Public Use
  Company Number: None

PATIENT
  Age: 19 Year
  Sex: Male
  Weight: 51.6 kg

DRUGS (6)
  1. LEXAPRO [Suspect]
     Indication: ANXIETY
     Dosage: LEXAPRO 10 MG PO Q 24 H
     Route: 048
     Dates: start: 20060807, end: 20060808
  2. LEXAPRO [Suspect]
     Indication: DEPRESSION
     Dosage: LEXAPRO 10 MG PO Q 24 H
     Route: 048
     Dates: start: 20060807, end: 20060808
  3. NEXIUM [Concomitant]
  4. SYNTHROID [Concomitant]
  5. . [Concomitant]
  6. CENTRUM MVI [Concomitant]

REACTIONS (5)
  - AKATHISIA [None]
  - DEPRESSED LEVEL OF CONSCIOUSNESS [None]
  - DYSKINESIA [None]
  - LOSS OF CONSCIOUSNESS [None]
  - SOMNOLENCE [None]
